FAERS Safety Report 10364350 (Version 2)
Quarter: 2014Q3

REPORT INFORMATION
  Report Type: Spontaneous
  Country: US (occurrence: US)
  Receive Date: 20140806
  Receipt Date: 20140904
  Transmission Date: 20150326
  Serious: Yes (Other)
  Sender: FDA-Public Use
  Company Number: US-MYLAN-2014M1000017

PATIENT

DRUGS (11)
  1. CARAFATE [Concomitant]
     Active Substance: SUCRALFATE
     Dosage: UNK
  2. PHENYTOIN CHEWABLE TABLETS, USP [Suspect]
     Active Substance: PHENYTOIN
     Dosage: 150 MG, HS
     Route: 048
     Dates: start: 201407
  3. PHENYTOIN. [Suspect]
     Active Substance: PHENYTOIN
     Indication: CONVULSION
     Dosage: 100 MG, BID
     Route: 048
     Dates: start: 201405, end: 201407
  4. MIRALAX                            /06344701/ [Concomitant]
     Dosage: UNK
  5. TOPAMAX [Concomitant]
     Active Substance: TOPIRAMATE
     Dosage: UNK
  6. KLONOPIN [Concomitant]
     Active Substance: CLONAZEPAM
     Dosage: UNK
  7. PREVACID [Concomitant]
     Active Substance: LANSOPRAZOLE
     Dosage: UNK
  8. PHENYTOIN CHEWABLE TABLETS, USP [Suspect]
     Active Substance: PHENYTOIN
     Indication: CONVULSION
     Dosage: 100 MG, BID
     Route: 048
     Dates: start: 201407
  9. KEPPRA [Concomitant]
     Active Substance: LEVETIRACETAM
     Dosage: UNK
  10. FIBER [Concomitant]
     Active Substance: PSYLLIUM HUSK
     Dosage: UNK
  11. PHENYTOIN. [Suspect]
     Active Substance: PHENYTOIN
     Dosage: 150 MG, HS
     Route: 048
     Dates: start: 201405, end: 201407

REACTIONS (5)
  - Diarrhoea [Not Recovered/Not Resolved]
  - Medication residue present [Not Recovered/Not Resolved]
  - Convulsion [Not Recovered/Not Resolved]
  - Constipation [Not Recovered/Not Resolved]
  - Drug level decreased [Not Recovered/Not Resolved]

NARRATIVE: CASE EVENT DATE: 201407
